FAERS Safety Report 24131761 (Version 2)
Quarter: 2024Q3

REPORT INFORMATION
  Report Type: Spontaneous
  Country: GB (occurrence: GB)
  Receive Date: 20240724
  Receipt Date: 20240801
  Transmission Date: 20241016
  Serious: Yes (Other)
  Sender: NOVARTIS
  Company Number: GB-002147023-NVSC2024GB150646

PATIENT
  Sex: Male

DRUGS (1)
  1. COSENTYX [Suspect]
     Active Substance: SECUKINUMAB
     Indication: Foetal exposure during pregnancy
     Dosage: UNK (MATERNAL EXPOSURE DURING PREGNANCY: 300 MG/QMO) AND (ROUTE: TRANSPLACENTAL)
     Route: 065

REACTIONS (3)
  - Foetal hypokinesia [Unknown]
  - Normal newborn [Unknown]
  - Foetal exposure during pregnancy [Unknown]

NARRATIVE: CASE EVENT DATE: 20230622
